FAERS Safety Report 17765406 (Version 13)
Quarter: 2021Q1

REPORT INFORMATION
  Report Type: Report from Study
  Country: JP (occurrence: JP)
  Receive Date: 20200511
  Receipt Date: 20210111
  Transmission Date: 20210419
  Serious: Yes (Death, Life-Threatening, Hospitalization, Other)
  Sender: FDA-Public Use
  Company Number: JP-ROCHE-2597106

PATIENT
  Age: 79 Year
  Sex: Male
  Weight: 45 kg

DRUGS (29)
  1. CARBOPLATIN. [Suspect]
     Active Substance: CARBOPLATIN
     Indication: NON-SMALL CELL LUNG CANCER
     Dosage: AUC5
     Route: 041
     Dates: start: 20200417, end: 20200417
  2. BILANOA [Concomitant]
     Active Substance: BILASTINE
     Indication: RHINITIS ALLERGIC
     Route: 048
  3. BEVACIZUMAB. [Suspect]
     Active Substance: BEVACIZUMAB
     Dosage: DOSAGE IS UNCERTAIN.
     Route: 041
     Dates: start: 20200514, end: 20200903
  4. AZILVA [Concomitant]
     Active Substance: AZILSARTAN KAMEDOXOMIL
     Indication: HYPERTENSION
     Route: 048
     Dates: end: 20201205
  5. DECADRON [Concomitant]
     Active Substance: DEXAMETHASONE
     Indication: PROPHYLAXIS
     Route: 048
     Dates: start: 20200418
  6. ALIMTA [Suspect]
     Active Substance: PEMETREXED DISODIUM
     Indication: NON-SMALL CELL LUNG CANCER
     Route: 041
     Dates: start: 20200417, end: 20200417
  7. ALIMTA [Suspect]
     Active Substance: PEMETREXED DISODIUM
     Route: 041
     Dates: start: 20201008
  8. KETAS [Concomitant]
     Active Substance: IBUDILAST
     Indication: SEASONAL ALLERGY
     Dosage: ADEQUATE DOSE
     Route: 047
     Dates: end: 20201129
  9. ACETAMINOPHEN. [Concomitant]
     Active Substance: ACETAMINOPHEN
     Indication: CANCER PAIN
     Dosage: SINGLE USE AND BEGINNING OF DOSAGE DAY: INVESTIGATIONAL AGENT ADMINISTERING ?FORMER
     Route: 048
  10. CARBOPLATIN. [Suspect]
     Active Substance: CARBOPLATIN
     Dosage: AUC5
     Route: 041
     Dates: start: 20200514, end: 20200709
  11. DECADRON (DEXAMETHASONE SODIUM PHOSPHATE) [Concomitant]
     Active Substance: DEXAMETHASONE SODIUM PHOSPHATE
     Route: 042
     Dates: start: 20200418, end: 20201010
  12. BEVACIZUMAB. [Suspect]
     Active Substance: BEVACIZUMAB
     Indication: NON-SMALL CELL LUNG CANCER
     Dosage: DOSAGE IS UNCERTAIN.
     Route: 041
     Dates: start: 20200417, end: 20200417
  13. APREPITANT. [Concomitant]
     Active Substance: APREPITANT
     Route: 048
     Dates: start: 20200418
  14. BEVACIZUMAB. [Suspect]
     Active Substance: BEVACIZUMAB
     Dosage: DOSAGE IS UNCERTAIN.
     Route: 041
     Dates: start: 20201008, end: 20201008
  15. ZOLPIDEM TARTRATE. [Concomitant]
     Active Substance: ZOLPIDEM TARTRATE
     Indication: INSOMNIA
     Dosage: 1, 2.5?5MG
     Route: 048
  16. LIDOMEX [Concomitant]
     Active Substance: PREDNISOLONE VALERATE ACETATE
     Indication: DERMATITIS
     Dosage: ADEQUATE DOSE
     Route: 062
  17. VEGIN [Concomitant]
     Indication: DERMATITIS
     Dosage: ADEQUATE DOSE
     Route: 062
  18. ATEZOLIZUMAB. [Suspect]
     Active Substance: ATEZOLIZUMAB
     Route: 041
     Dates: start: 20200514, end: 20200903
  19. ALIMTA [Suspect]
     Active Substance: PEMETREXED DISODIUM
     Route: 041
     Dates: start: 20200514, end: 20200903
  20. VONOPRAZAN FUMARATE [Suspect]
     Active Substance: VONOPRAZAN FUMARATE
     Indication: GASTROOESOPHAGEAL REFLUX DISEASE
     Dosage: ON 10/DEC/2020, MOST RECENT DOSE
     Route: 048
  21. GRANISETRON HYDROCHLORIDE. [Concomitant]
     Active Substance: GRANISETRON HYDROCHLORIDE
     Indication: PROPHYLAXIS
     Route: 041
     Dates: start: 20200417, end: 20201008
  22. D?SORBITOL [Concomitant]
     Indication: ABNORMAL FAECES
     Route: 048
     Dates: start: 20200420
  23. CONTOMIN [Concomitant]
     Active Substance: CHLORPROMAZINE
     Indication: HICCUPS
     Dosage: SINGLE USE
     Route: 048
     Dates: start: 20200418
  24. ATEZOLIZUMAB. [Suspect]
     Active Substance: ATEZOLIZUMAB
     Indication: NON-SMALL CELL LUNG CANCER
     Route: 041
     Dates: start: 20200417, end: 20200417
  25. ATEZOLIZUMAB. [Suspect]
     Active Substance: ATEZOLIZUMAB
     Route: 041
     Dates: start: 20201008, end: 20201008
  26. FRESMIN S [HYDROXOCOBALAMIN ACETATE] [Concomitant]
     Indication: PREMEDICATION
     Route: 048
     Dates: start: 20200402
  27. DECADRON (DEXAMETHASONE SODIUM PHOSPHATE) [Concomitant]
     Active Substance: DEXAMETHASONE SODIUM PHOSPHATE
     Indication: PROPHYLAXIS
     Route: 042
     Dates: start: 20200417, end: 20201008
  28. HIRUDOID [Concomitant]
     Active Substance: GLYCOSAMINOGLYCANS
     Indication: DERMATITIS
     Dosage: ADEQUATE DOSE
     Route: 062
  29. APREPITANT. [Concomitant]
     Active Substance: APREPITANT
     Indication: PROPHYLAXIS
     Route: 048
     Dates: start: 20200417

REACTIONS (7)
  - Purpura [Recovered/Resolved]
  - Urinary tract infection [Unknown]
  - Proteinuria [Unknown]
  - Renal impairment [Unknown]
  - Platelet count decreased [Unknown]
  - Sepsis [Recovering/Resolving]
  - Non-small cell lung cancer [Fatal]

NARRATIVE: CASE EVENT DATE: 20200425
